FAERS Safety Report 5006782-2 (Version None)
Quarter: 2006Q2

REPORT INFORMATION
  Report Type: 
  Country: None (occurrence: None)
  Receive Date: 20060516
  Receipt Date: 20060505
  Transmission Date: 20061013
  Serious: Yes (Death, Hospitalization)
  Sender: FDA-Public Use
  Company Number: GXKR2006GB02522

PATIENT
  Age: 26 Year
  Sex: Female

DRUGS (1)
  1. IBUPROFEN [Suspect]
     Dosage: 105.6 G, ORAL
     Route: 048

REACTIONS (9)
  - CARDIAC ARREST [None]
  - CIRCULATORY COLLAPSE [None]
  - HAEMODIALYSIS [None]
  - HYPOTENSION [None]
  - INTENTIONAL OVERDOSE [None]
  - LOSS OF CONSCIOUSNESS [None]
  - METABOLIC ACIDOSIS [None]
  - MYOCARDIAL ISCHAEMIA [None]
  - VENTRICULAR FIBRILLATION [None]
